FAERS Safety Report 21171803 (Version 1)
Quarter: 2022Q3

REPORT INFORMATION
  Report Type: Spontaneous
  Country: US (occurrence: None)
  Receive Date: 20220804
  Receipt Date: 20220804
  Transmission Date: 20221027
  Serious: Yes (Hospitalization)
  Sender: FDA-Public Use
  Company Number: US-FARMAPROD-202207-1415

PATIENT
  Sex: Female

DRUGS (22)
  1. OXERVATE [Suspect]
     Active Substance: CENEGERMIN-BKBJ
     Indication: Neurotrophic keratopathy
     Route: 047
     Dates: start: 20220705
  2. ESTRADIOL [Concomitant]
     Active Substance: ESTRADIOL
  3. PRISTIQ EXTENDED-RELEASE [Concomitant]
     Active Substance: DESVENLAFAXINE SUCCINATE
     Dosage: EXTENDED RELEASE 24 HOURS
  4. CALCIUM 600-VIT D3 [Concomitant]
     Dosage: 600 MG-20
  5. MELOXICAM [Concomitant]
     Active Substance: MELOXICAM
  6. ASPIRIN [Concomitant]
     Active Substance: ASPIRIN
  7. LEVOTHYROXINE [Concomitant]
     Active Substance: LEVOTHYROXINE
  8. DESVENLAFAXINE SUCCINATE [Concomitant]
     Active Substance: DESVENLAFAXINE SUCCINATE
  9. GABAPENTIN [Concomitant]
     Active Substance: GABAPENTIN
  10. SIMVASTATIN [Concomitant]
     Active Substance: SIMVASTATIN
  11. TRAZODONE HCL [Concomitant]
     Active Substance: TRAZODONE HYDROCHLORIDE
  12. MOXIFLOXACIN [Concomitant]
     Active Substance: MOXIFLOXACIN
  13. METHAZOLAMIDE [Concomitant]
     Active Substance: METHAZOLAMIDE
  14. ONDANSETRON [Concomitant]
     Active Substance: ONDANSETRON
     Dosage: RAPIDS
  15. NOVOLOG [Concomitant]
     Active Substance: INSULIN ASPART
     Dosage: 100/ML (3) INSULN PEN
  16. VITAMIN D3 [Concomitant]
     Active Substance: CHOLECALCIFEROL
  17. VALACYCLOVIR [Concomitant]
     Active Substance: VALACYCLOVIR HYDROCHLORIDE
  18. TIMOLOL MALEATE [Concomitant]
     Active Substance: TIMOLOL MALEATE
  19. DORZOLAMIDE HYDROCHLORIDE [Concomitant]
     Active Substance: DORZOLAMIDE HYDROCHLORIDE
  20. LATANOPROST [Concomitant]
     Active Substance: LATANOPROST
  21. ACETAZOLAMIDE [Concomitant]
     Active Substance: ACETAZOLAMIDE
  22. ULTRAM [Concomitant]
     Active Substance: TRAMADOL HYDROCHLORIDE

REACTIONS (2)
  - Hospitalisation [Unknown]
  - Product storage error [Unknown]
